FAERS Safety Report 4355506-0 (Version None)
Quarter: 2004Q2

REPORT INFORMATION
  Report Type: 
  Country: None (occurrence: None)
  Receive Date: 20040503
  Receipt Date: 20030915
  Transmission Date: 20050107
  Serious: Yes (Other)
  Sender: FDA-Public Use
  Company Number: PHEH2003US08417

PATIENT
  Age: 68 Year
  Sex: Male
  Weight: 99.8 kg

DRUGS (1)
  1. LOTREL [Suspect]
     Dates: start: 20020808, end: 20030704

REACTIONS (1)
  - SWELLING FACE [None]
